FAERS Safety Report 21491236 (Version 1)
Quarter: 2022Q4

REPORT INFORMATION
  Report Type: Spontaneous
  Country: US (occurrence: US)
  Receive Date: 20221021
  Receipt Date: 20221021
  Transmission Date: 20230113
  Serious: No
  Sender: FDA-Public Use
  Company Number: US-CELLTRION INC.-2022US011171

PATIENT

DRUGS (6)
  1. INFLECTRA [Suspect]
     Active Substance: INFLIXIMAB-DYYB
     Indication: Chorioretinitis
     Dosage: 5 MG/KG, STARTING DOSE
  2. INFLECTRA [Suspect]
     Active Substance: INFLIXIMAB-DYYB
     Indication: Eye inflammation
     Dosage: AFTER TWO LOADING DOSES TWO WEEKS APART, MAINTENANCE DOSES WERE GIVEN EVERY 4 WEEKS INITIALLY
  3. INFLECTRA [Suspect]
     Active Substance: INFLIXIMAB-DYYB
     Indication: Uveitis
     Dosage: 8.5MG/KG CLINICAL RESPONSE FINAL AT MAX TOLERATE DOSE
  4. REMICADE [Suspect]
     Active Substance: INFLIXIMAB
     Indication: Chorioretinitis
     Dosage: 5 MG/KG, STARTING DOSE
  5. REMICADE [Suspect]
     Active Substance: INFLIXIMAB
     Indication: Eye inflammation
     Dosage: AFTER TWO LOADING DOSES TWO WEEKS APART, MAINTENANCE DOSES WERE GIVEN EVERY 4 WEEKS INITIALLY
  6. REMICADE [Suspect]
     Active Substance: INFLIXIMAB
     Indication: Uveitis
     Dosage: 8.5MG/KG CLINICAL RESPONSE FINAL AT MAX TOLERATE DOSE

REACTIONS (3)
  - Therapy responder [Unknown]
  - Drug effective for unapproved indication [Unknown]
  - Off label use [Unknown]
